FAERS Safety Report 4468383-4 (Version None)
Quarter: 2004Q4

REPORT INFORMATION
  Report Type: 
  Country: None (occurrence: None)
  Receive Date: 20041007
  Receipt Date: 20040913
  Transmission Date: 20050328
  Serious: Yes (Hospitalization)
  Sender: FDA-Public Use
  Company Number: GB-GLAXOSMITHKLINE-B0345135A

PATIENT
  Age: 62 Year
  Sex: Female
  Weight: 85 kg

DRUGS (3)
  1. FLIXOTIDE [Suspect]
     Indication: ASTHMA
     Route: 055
  2. SIMVASTATIN [Concomitant]
     Route: 065
  3. ZESTORETIC [Concomitant]
     Route: 065

REACTIONS (7)
  - ABASIA [None]
  - AFFECTIVE DISORDER [None]
  - ASTHMA [None]
  - CONDITION AGGRAVATED [None]
  - COUGH [None]
  - HEADACHE [None]
  - MEDICATION ERROR [None]
